FAERS Safety Report 9516907 (Version 1)
Quarter: 2013Q3

REPORT INFORMATION
  Report Type: Spontaneous
  Country: US (occurrence: US)
  Receive Date: 20130911
  Receipt Date: 20130911
  Transmission Date: 20140515
  Serious: No
  Sender: FDA-Public Use
  Company Number: US-PFIZER INC-2013258727

PATIENT
  Age: 33 Year
  Sex: Female
  Weight: 48.1 kg

DRUGS (12)
  1. CHANTIX [Suspect]
     Indication: SMOKING CESSATION THERAPY
     Dosage: 0.5 MG, DAILY
     Dates: start: 20130905
  2. DOMPERIDONE [Suspect]
     Dosage: UNK
  3. HYDROCODONE [Suspect]
     Dosage: UNK
  4. VICODIN [Suspect]
     Dosage: UNK
  5. ZOFRAN [Suspect]
     Indication: NAUSEA
     Dosage: UNK
  6. GABAPENTIN [Concomitant]
     Indication: DIABETIC NEUROPATHY
     Dosage: 1200 MG (300MG X 4), 3X/DAY
  7. CYMBALTA [Concomitant]
     Indication: DEPRESSION
     Dosage: 60 MG, 2X/DAY
  8. CYMBALTA [Concomitant]
     Indication: FIBROMYALGIA
  9. TOPIRAMATE [Concomitant]
     Indication: MIGRAINE
     Dosage: 400 MG, 3X/DAY
  10. TOPIRAMATE [Concomitant]
     Indication: MOOD SWINGS
  11. LANTUS [Concomitant]
     Indication: TYPE 1 DIABETES MELLITUS
     Dosage: 7 IU, DAILY
  12. HUMALOG [Concomitant]
     Indication: TYPE 1 DIABETES MELLITUS
     Dosage: UNK; SLIDING SCALE

REACTIONS (5)
  - Constipation [Unknown]
  - Nausea [Unknown]
  - Vomiting [Unknown]
  - Abdominal distension [Unknown]
  - Abdominal pain lower [Unknown]
